FAERS Safety Report 18810090 (Version 2)
Quarter: 2021Q2

REPORT INFORMATION
  Report Type: Spontaneous
  Country: IT (occurrence: IT)
  Receive Date: 20210129
  Receipt Date: 20210506
  Transmission Date: 20210717
  Serious: Yes (Death)
  Sender: FDA-Public Use
  Company Number: IT-TEVA-2021-IT-1873352

PATIENT
  Age: 66 Year
  Weight: 137 kg

DRUGS (1)
  1. METOTRESSATO TEVA [Suspect]
     Active Substance: METHOTREXATE SODIUM
     Indication: B-CELL LYMPHOMA STAGE IV
     Dosage: 3GRAM
     Route: 042
     Dates: start: 20201211, end: 20201211

REACTIONS (3)
  - Pyrexia [Fatal]
  - Acute kidney injury [Fatal]
  - Asthenia [Fatal]

NARRATIVE: CASE EVENT DATE: 20201216
